FAERS Safety Report 12184620 (Version 1)
Quarter: 2016Q1

REPORT INFORMATION
  Report Type: Spontaneous
  Country: US (occurrence: US)
  Receive Date: 20160316
  Receipt Date: 20160316
  Transmission Date: 20160526
  Serious: Yes (Other)
  Sender: FDA-Public Use
  Company Number: US-JNJFOC-20160308703

PATIENT
  Sex: Female
  Weight: 90.72 kg

DRUGS (7)
  1. REMICADE [Suspect]
     Active Substance: INFLIXIMAB
     Indication: RHEUMATOID ARTHRITIS
     Dosage: 4 VIALS
     Route: 042
     Dates: start: 2005, end: 2013
  2. LISINOPRIL. [Concomitant]
     Active Substance: LISINOPRIL
     Indication: BLOOD PRESSURE MEASUREMENT
     Route: 048
  3. REMICADE [Suspect]
     Active Substance: INFLIXIMAB
     Indication: ANKYLOSING SPONDYLITIS
     Dosage: 4 VIALS
     Route: 042
     Dates: start: 2005, end: 2013
  4. METHOTREXATE [Concomitant]
     Active Substance: METHOTREXATE
     Indication: ARTHRITIS
     Route: 050
  5. ZORVOLEX [Concomitant]
     Active Substance: DICLOFENAC
     Indication: PAIN
     Route: 065
  6. BORIC ACID [Concomitant]
     Active Substance: BORIC ACID
     Indication: ARTHRITIS
     Route: 065
  7. METFORMIN [Concomitant]
     Active Substance: METFORMIN HYDROCHLORIDE
     Indication: DIABETES MELLITUS
     Route: 065

REACTIONS (4)
  - Off label use [Unknown]
  - Ankylosing spondylitis [Unknown]
  - Glucose tolerance impaired [Not Recovered/Not Resolved]
  - Inappropriate schedule of drug administration [Unknown]

NARRATIVE: CASE EVENT DATE: 2005
